FAERS Safety Report 13735786 (Version 1)
Quarter: 2017Q3

REPORT INFORMATION
  Report Type: Spontaneous
  Country: US (occurrence: US)
  Receive Date: 20170710
  Receipt Date: 20170710
  Transmission Date: 20171127
  Serious: No
  Sender: FDA-Public Use
  Company Number: US-WEST-WARD PHARMACEUTICALS CORP.-US-H14001-17-01729

PATIENT
  Sex: Male

DRUGS (1)
  1. MITIGARE [Suspect]
     Active Substance: COLCHICINE
     Indication: GOUT
     Route: 065

REACTIONS (2)
  - Pain [Not Recovered/Not Resolved]
  - Drug dose omission [Recovered/Resolved]
